FAERS Safety Report 4296901-8 (Version None)
Quarter: 2004Q1

REPORT INFORMATION
  Report Type: 
  Country: None (occurrence: None)
  Receive Date: 20040217
  Receipt Date: 20031106
  Transmission Date: 20041129
  Serious: Yes (Death)
  Sender: FDA-Public Use
  Company Number: ZA-BRISTOL-MYERS SQUIBB COMPANY-12429338

PATIENT
  Age: 10 Month

DRUGS (3)
  1. STAVUDINE [Suspect]
     Indication: HIV INFECTION
     Dates: start: 20030422, end: 20030503
  2. LAMIVUDINE [Suspect]
     Indication: HIV INFECTION
     Dates: start: 20030422, end: 20030503
  3. RITONAVIR [Suspect]
     Indication: HIV INFECTION
     Dates: start: 20030422, end: 20030503

REACTIONS (1)
  - SEPSIS [None]
